FAERS Safety Report 6931516-1 (Version None)
Quarter: 2010Q3

REPORT INFORMATION
  Report Type: 
  Country: None (occurrence: None)
  Receive Date: 20100816
  Receipt Date: 20100804
  Transmission Date: 20110219
  Serious: Yes (Other)
  Sender: FDA-Public Use
  Company Number: 10-294

PATIENT
  Age: 62 Year
  Sex: Female

DRUGS (1)
  1. ALEVE [Suspect]
     Indication: SLEEP DISORDER
     Dosage: 220 MG, DAILY, ORAL,  PRIOR TO 07/29/10
     Route: 048
     Dates: end: 20100729

REACTIONS (2)
  - DRUG DEPENDENCE [None]
  - EXPIRED DRUG ADMINISTERED [None]
